FAERS Safety Report 24607943 (Version 2)
Quarter: 2024Q4

REPORT INFORMATION
  Report Type: Report from Study
  Country: BR (occurrence: BR)
  Receive Date: 20241112
  Receipt Date: 20241119
  Transmission Date: 20250114
  Serious: Yes (Other)
  Sender: NOVARTIS
  Company Number: BR-002147023-NVSC2024BR216937

PATIENT
  Sex: Female

DRUGS (3)
  1. COSENTYX [Suspect]
     Active Substance: SECUKINUMAB
     Indication: Psoriatic arthropathy
     Dosage: UNK
     Route: 065
  2. COSENTYX [Suspect]
     Active Substance: SECUKINUMAB
     Dosage: 150 MG, OTHER (1 APPLICATION IN WEEKS 0,1,2,3 AND 4, AND AFTER EVERY 30 DAYS)
     Route: 065
  3. COSENTYX [Suspect]
     Active Substance: SECUKINUMAB
     Dosage: UNK
     Route: 065

REACTIONS (14)
  - Pneumonia [Unknown]
  - Depression [Unknown]
  - Panic disorder [Unknown]
  - Malaise [Unknown]
  - Gait disturbance [Unknown]
  - Atrophy [Unknown]
  - Swelling [Unknown]
  - Thinking abnormal [Unknown]
  - Weight increased [Unknown]
  - Pain [Unknown]
  - Pain in extremity [Unknown]
  - Somnolence [Unknown]
  - Back pain [Unknown]
  - Movement disorder [Unknown]
